FAERS Safety Report 5195543-X (Version None)
Quarter: 2006Q4

REPORT INFORMATION
  Report Type: 
  Country: None (occurrence: None)
  Receive Date: 20061222
  Receipt Date: 20061222
  Transmission Date: 20070319
  Serious: Yes (Hospitalization)
  Sender: FDA-Public Use
  Company Number: None

PATIENT
  Age: 18 Year
  Sex: Male

DRUGS (1)
  1. IBUPROFEN [Suspect]
     Indication: JOINT INJURY
     Dosage: 800 MG PO
     Route: 048
     Dates: start: 20060701

REACTIONS (3)
  - DIZZINESS [None]
  - HEADACHE [None]
  - VOMITING [None]
